FAERS Safety Report 9583311 (Version 1)
Quarter: 2013Q4

REPORT INFORMATION
  Report Type: Spontaneous
  Country: US (occurrence: US)
  Receive Date: 20131002
  Receipt Date: 20131002
  Transmission Date: 20140711
  Serious: No
  Sender: FDA-Public Use
  Company Number: US-AMGEN-USASP2013046357

PATIENT
  Age: 53 Year
  Sex: Female
  Weight: 79.37 kg

DRUGS (9)
  1. ENBREL [Suspect]
     Indication: PRODUCT USED FOR UNKNOWN INDICATION
     Dosage: 50 MG, QWK
     Route: 058
  2. PLAQUENIL                          /00072602/ [Concomitant]
     Dosage: 200 MG, UNK
  3. ARAVA [Concomitant]
     Dosage: 10 MG, UNK
  4. LISINOPRIL [Concomitant]
     Dosage: 10 MG, UNK
  5. IBUPROFEN [Concomitant]
     Dosage: 200 MG, UNK
  6. FOLIC ACID [Concomitant]
     Dosage: 1 MG, UNK
  7. HYDROCHLOROTH [Concomitant]
     Dosage: 12.5 MG, UNK
  8. LEVOTHYROXIN [Concomitant]
     Dosage: 25 MUG, UNK
  9. TRAMADOL HCL [Concomitant]
     Dosage: 100 MG, UNK

REACTIONS (4)
  - Injection site swelling [Recovering/Resolving]
  - Injection site reaction [Recovering/Resolving]
  - Injection site erythema [Recovering/Resolving]
  - Injection site pruritus [Recovering/Resolving]
